FAERS Safety Report 25194485 (Version 1)
Quarter: 2025Q2

REPORT INFORMATION
  Report Type: Spontaneous
  Country: US (occurrence: US)
  Receive Date: 20250414
  Receipt Date: 20250414
  Transmission Date: 20250717
  Serious: No
  Sender: ARMSTRONG
  Company Number: US-Armstrong Pharmaceuticals, Inc.-2174893

PATIENT

DRUGS (1)
  1. PRIMATENE MIST [Suspect]
     Active Substance: EPINEPHRINE

REACTIONS (3)
  - Agitation [Unknown]
  - Palpitations [Unknown]
  - Headache [Unknown]
